FAERS Safety Report 11103749 (Version 4)
Quarter: 2018Q4

REPORT INFORMATION
  Report Type: Spontaneous
  Country: US (occurrence: US)
  Receive Date: 20150511
  Receipt Date: 20181115
  Transmission Date: 20190204
  Serious: No
  Sender: FDA-Public Use
  Company Number: US-PFIZER INC-2015155666

PATIENT
  Age: 78 Year
  Sex: Female

DRUGS (8)
  1. DULOXETINE HYDROCHLORIDE. [Suspect]
     Active Substance: DULOXETINE HYDROCHLORIDE
     Dosage: UNK
  2. CEPHALEXINE [Suspect]
     Active Substance: CEPHALEXIN
     Dosage: UNK
  3. MORPHINE SULFATE. [Suspect]
     Active Substance: MORPHINE SULFATE
     Dosage: UNK
  4. CODEINE PHOSPHATE [Suspect]
     Active Substance: CODEINE PHOSPHATE
     Dosage: UNK
  5. ZAROXOLYN [Suspect]
     Active Substance: METOLAZONE
     Dosage: UNK
  6. INAPSINE [Suspect]
     Active Substance: DROPERIDOL
     Dosage: UNK
  7. MELOXICAM. [Suspect]
     Active Substance: MELOXICAM
     Dosage: UNK
  8. CIPRO [Suspect]
     Active Substance: CIPROFLOXACIN HYDROCHLORIDE
     Dosage: UNK

REACTIONS (3)
  - Drug hypersensitivity [Unknown]
  - Nausea [Unknown]
  - Vomiting [Unknown]
